FAERS Safety Report 4764572-X (Version None)
Quarter: 2005Q3

REPORT INFORMATION
  Report Type: 
  Country: None (occurrence: None)
  Receive Date: 20050906
  Receipt Date: 20050825
  Transmission Date: 20060218
  Serious: Yes (Other)
  Sender: FDA-Public Use
  Company Number: 2005074620

PATIENT
  Age: 68 Year
  Sex: Male
  Weight: 92.9874 kg

DRUGS (8)
  1. TIKOSYN [Suspect]
     Indication: HEART RATE ABNORMAL
     Dosage: 1 MG (0.5 MG, 2 IN 1 D), ORAL
     Route: 048
     Dates: start: 20050101
  2. COUMADIN [Concomitant]
  3. ALDACTONE [Concomitant]
  4. DIGOXIN (DIIGOXIN) [Concomitant]
  5. LASIX [Concomitant]
  6. POTASSIUM (POTASSIUM) [Concomitant]
  7. MAG-OX (MAGNESIUM OXIDE) [Concomitant]
  8. COLCHICINE (COLCHICINE) [Concomitant]

REACTIONS (8)
  - ABDOMINAL DISTENSION [None]
  - ABDOMINAL PAIN UPPER [None]
  - ATRIAL FIBRILLATION [None]
  - BREATHING-RELATED SLEEP DISORDER [None]
  - DYSPNOEA [None]
  - FATIGUE [None]
  - GASTROOESOPHAGEAL REFLUX DISEASE [None]
  - WEIGHT DECREASED [None]
